FAERS Safety Report 5149365-6 (Version None)
Quarter: 2006Q4

REPORT INFORMATION
  Report Type: 
  Country: None (occurrence: None)
  Receive Date: 20061113
  Receipt Date: 20051123
  Transmission Date: 20070319
  Serious: No
  Sender: FDA-Public Use
  Company Number: 426513

PATIENT
  Age: 39 Year
  Sex: Female

DRUGS (3)
  1. COREG [Suspect]
     Dosage: 12.5MG TWICE PER DAY
     Route: 048
  2. ALTACE [Concomitant]
  3. ASPIRIN [Concomitant]

REACTIONS (3)
  - DIZZINESS [None]
  - HEART RATE IRREGULAR [None]
  - TREMOR [None]
